FAERS Safety Report 4985563-X (Version None)
Quarter: 2006Q2

REPORT INFORMATION
  Report Type: 
  Country: None (occurrence: None)
  Receive Date: 20060428
  Receipt Date: 20050411
  Transmission Date: 20061013
  Serious: No
  Sender: FDA-Public Use
  Company Number: US-GLAXOSMITHKLINE-A0553596A

PATIENT
  Age: 59 Year
  Sex: Female

DRUGS (10)
  1. SEREVENT [Suspect]
     Indication: CHRONIC OBSTRUCTIVE PULMONARY DISEASE
     Route: 055
  2. PROVENTIL [Concomitant]
  3. BUSPAR [Concomitant]
  4. FLUOXETINE [Concomitant]
  5. ALLEGRA [Concomitant]
  6. PREDNISONE [Concomitant]
  7. SINGULAIR [Concomitant]
  8. AMBIEN [Concomitant]
  9. FLEXERIL [Concomitant]
     Route: 065
  10. FOSAMAX [Concomitant]

REACTIONS (1)
  - DRUG INEFFECTIVE [None]
